FAERS Safety Report 21924560 (Version 1)
Quarter: 2023Q1

REPORT INFORMATION
  Report Type: Spontaneous
  Country: US (occurrence: US)
  Receive Date: 20230130
  Receipt Date: 20230130
  Transmission Date: 20230418
  Serious: Yes (Other)
  Sender: FDA-Public Use
  Company Number: US-STRIDES ARCOLAB LIMITED-2022SP014168

PATIENT
  Age: 6 Decade
  Sex: Female

DRUGS (32)
  1. NYSTATIN [Suspect]
     Active Substance: NYSTATIN
     Indication: Lyme disease
     Dosage: UNK
     Route: 065
  2. NYSTATIN [Suspect]
     Active Substance: NYSTATIN
     Indication: Babesiosis
     Dosage: UNK
     Route: 065
     Dates: start: 2015
  3. NYSTATIN [Suspect]
     Active Substance: NYSTATIN
     Dosage: UNK
     Route: 065
     Dates: start: 2021
  4. NYSTATIN [Suspect]
     Active Substance: NYSTATIN
     Dosage: 50000 INTERNATIONAL UNIT, BID (NYSTATIN LEUCOVORIN)
     Route: 065
  5. MINOCYCLINE [Suspect]
     Active Substance: MINOCYCLINE HYDROCHLORIDE
     Indication: Lyme disease
     Dosage: UNK
     Route: 065
  6. MINOCYCLINE [Suspect]
     Active Substance: MINOCYCLINE HYDROCHLORIDE
     Indication: Babesiosis
     Dosage: 100 MILLIGRAM, BID
     Route: 048
     Dates: start: 2021
  7. TRAZODONE [Suspect]
     Active Substance: TRAZODONE HYDROCHLORIDE
     Indication: Lyme disease
     Dosage: UNK
     Route: 065
  8. HYDROXYCHLOROQUINE [Suspect]
     Active Substance: HYDROXYCHLOROQUINE
     Indication: Lyme disease
     Dosage: UNK
     Route: 065
  9. HYDROXYCHLOROQUINE [Suspect]
     Active Substance: HYDROXYCHLOROQUINE
     Indication: Babesiosis
     Dosage: UNK
     Route: 065
  10. HYDROXYCHLOROQUINE [Suspect]
     Active Substance: HYDROXYCHLOROQUINE
     Dosage: UNK
     Route: 065
  11. HYDROXYCHLOROQUINE [Suspect]
     Active Substance: HYDROXYCHLOROQUINE
     Dosage: UNK
     Route: 065
  12. HYDROXYCHLOROQUINE [Suspect]
     Active Substance: HYDROXYCHLOROQUINE
     Dosage: 200 MILLIGRAM, BID
     Route: 048
     Dates: start: 2021
  13. DAPSONE [Suspect]
     Active Substance: DAPSONE
     Indication: Lyme disease
     Dosage: 50 MILLIGRAM,EVERY OTHER DAY
     Route: 048
  14. DAPSONE [Suspect]
     Active Substance: DAPSONE
     Dosage: 25 MILLIGRAM, BID
     Route: 048
     Dates: start: 2021
  15. DAPSONE [Suspect]
     Active Substance: DAPSONE
     Dosage: 100 MILLIGRAM/PER DAY, DOSE INCREASED
     Route: 048
     Dates: start: 202102
  16. DAPSONE [Suspect]
     Active Substance: DAPSONE
     Dosage: 200 MILLIGRAM, BID, INCREASED
     Route: 048
  17. RIFAMPIN [Suspect]
     Active Substance: RIFAMPIN
     Indication: Lyme disease
     Dosage: 300 MILLIGRAM, BID
     Route: 048
     Dates: start: 2021
  18. ZITHROMAX [Suspect]
     Active Substance: AZITHROMYCIN DIHYDRATE
     Indication: Lyme disease
     Dosage: UNK
     Route: 065
  19. ZITHROMAX [Suspect]
     Active Substance: AZITHROMYCIN DIHYDRATE
     Indication: Babesiosis
     Dosage: UNK (ZITHROMAX)
     Route: 065
  20. MALARONE [Suspect]
     Active Substance: ATOVAQUONE\PROGUANIL HYDROCHLORIDE
     Indication: Lyme disease
     Dosage: UNK
     Route: 065
  21. MALARONE [Suspect]
     Active Substance: ATOVAQUONE\PROGUANIL HYDROCHLORIDE
     Indication: Babesiosis
     Dosage: UNK
     Route: 065
  22. MALARONE [Suspect]
     Active Substance: ATOVAQUONE\PROGUANIL HYDROCHLORIDE
     Dosage: 2 DOSAGE FORM, BID
     Route: 048
     Dates: start: 201505
  23. MALARONE [Suspect]
     Active Substance: ATOVAQUONE\PROGUANIL HYDROCHLORIDE
     Dosage: UNK
     Route: 065
     Dates: start: 2021, end: 2021
  24. MALARONE [Suspect]
     Active Substance: ATOVAQUONE\PROGUANIL HYDROCHLORIDE
     Dosage: UNK
     Route: 065
     Dates: start: 2021, end: 2021
  25. VENLAFAXINE [Suspect]
     Active Substance: VENLAFAXINE HYDROCHLORIDE
     Indication: Lyme disease
     Dosage: UNK
     Route: 065
  26. HERBALS\STEVIA REBAUDIUNA LEAF [Suspect]
     Active Substance: HERBALS\STEVIA REBAUDIUNA LEAF
     Indication: Lyme disease
     Dosage: UNK
     Route: 065
  27. CEFDINIR [Suspect]
     Active Substance: CEFDINIR
     Indication: Lyme disease
     Dosage: UNK
     Route: 065
  28. CEFDINIR [Suspect]
     Active Substance: CEFDINIR
     Indication: Babesiosis
     Dosage: UNK
     Route: 065
  29. HERBALS\VITIS VINIFERA SEED [Suspect]
     Active Substance: HERBALS\VITIS VINIFERA SEED
     Indication: Lyme disease
     Dosage: UNK, BID
     Route: 065
  30. DIETARY SUPPLEMENT\GRAPE SEED EXTRACT [Suspect]
     Active Substance: DIETARY SUPPLEMENT\GRAPE SEED EXTRACT
     Indication: Babesiosis
  31. HERBALS [Suspect]
     Active Substance: HERBALS
     Indication: Lyme disease
     Dosage: UNK
     Route: 065
  32. HERBALS [Suspect]
     Active Substance: HERBALS
     Indication: Babesiosis
     Dosage: UNK
     Route: 065

REACTIONS (5)
  - Drug ineffective [Unknown]
  - Therapy partial responder [Unknown]
  - Vomiting [Unknown]
  - Nausea [Unknown]
  - Off label use [Unknown]

NARRATIVE: CASE EVENT DATE: 20210101
